FAERS Safety Report 6270248-2 (Version None)
Quarter: 2009Q3

REPORT INFORMATION
  Report Type: 
  Country: None (occurrence: None)
  Receive Date: 20090716
  Receipt Date: 20090713
  Transmission Date: 20100115
  Serious: Yes (Death, Other)
  Sender: FDA-Public Use
  Company Number: US-BAYER-200924208GPV

PATIENT

DRUGS (1)
  1. SORAFENIB [Suspect]
     Indication: THYROID CANCER
     Dosage: 400-800 MG/DAY

REACTIONS (13)
  - ARTHRALGIA [None]
  - CARDIAC ARREST [None]
  - CLOSTRIDIUM DIFFICILE SEPSIS [None]
  - DIARRHOEA [None]
  - DISSEMINATED INTRAVASCULAR COAGULATION [None]
  - HYPERKALAEMIA [None]
  - HYPERTENSION [None]
  - HYPOKALAEMIA [None]
  - HYPONATRAEMIA [None]
  - INFECTION [None]
  - PALMAR-PLANTAR ERYTHRODYSAESTHESIA SYNDROME [None]
  - PULMONARY EMBOLISM [None]
  - THROMBOCYTOPENIA [None]
